FAERS Safety Report 9848317 (Version 1)
Quarter: 2014Q1

REPORT INFORMATION
  Report Type: Spontaneous
  Country: US (occurrence: None)
  Receive Date: 20140117
  Receipt Date: 20140117
  Transmission Date: 20141002
  Serious: Yes (Death)
  Sender: FDA-Public Use
  Company Number: B0958848A

PATIENT
  Age: 49 Year
  Sex: Female

DRUGS (2)
  1. MORPHINE (MORPHINE) (UNKNOWN) (MORPHINE) [Suspect]
  2. PAROXETINE HYDROCHLORIDE [Suspect]

REACTIONS (1)
  - Drug abuse [None]
